FAERS Safety Report 8286192-5 (Version None)
Quarter: 2012Q2

REPORT INFORMATION
  Report Type: 
  Country: None (occurrence: None)
  Receive Date: 20120416
  Receipt Date: 20120411
  Transmission Date: 20120825
  Serious: No
  Sender: FDA-Public Use
  Company Number: US-PFIZER INC-2012091448

PATIENT

DRUGS (1)
  1. FLECTOR [Suspect]
     Indication: BURSITIS
     Dosage: UNK

REACTIONS (3)
  - OROPHARYNGEAL DISCOMFORT [None]
  - INSOMNIA [None]
  - THROAT IRRITATION [None]
